FAERS Safety Report 5077560-3 (Version None)
Quarter: 2006Q3

REPORT INFORMATION
  Report Type: 
  Country: None (occurrence: None)
  Receive Date: 20060810
  Receipt Date: 20060330
  Transmission Date: 20061208
  Serious: No
  Sender: FDA-Public Use
  Company Number: US-GLAXOSMITHKLINE-A0600641A

PATIENT
  Age: 25 Year
  Sex: Male

DRUGS (1)
  1. PAXIL [Suspect]
     Indication: ANXIETY DISORDER
     Dosage: 20MG UNKNOWN
     Route: 048
     Dates: start: 20000101

REACTIONS (2)
  - DRUG EFFECT DECREASED [None]
  - PANIC ATTACK [None]
